FAERS Safety Report 6287665-7 (Version None)
Quarter: 2009Q3

REPORT INFORMATION
  Report Type: 
  Country: None (occurrence: None)
  Receive Date: 20090727
  Receipt Date: 20090727
  Transmission Date: 20100115
  Serious: Yes (Hospitalization)
  Sender: FDA-Public Use
  Company Number: None

PATIENT
  Age: 68 Year
  Sex: Male

DRUGS (8)
  1. VELCADE [Suspect]
     Indication: HEAD AND NECK CANCER
     Dosage: 2.4 MG 2X/WK IV PUSH
     Route: 042
     Dates: start: 20081103, end: 20081215
  2. CISPLATIN [Suspect]
     Indication: HEAD AND NECK CANCER
     Dosage: 55MG 1/WK IV PB
     Route: 042
     Dates: start: 20081103, end: 20081215
  3. ALLOPURINOL [Concomitant]
  4. ASPIRIN [Concomitant]
  5. INDAPAMIDE [Concomitant]
  6. ONDANSETRON [Concomitant]
  7. DARVOCET [Concomitant]
  8. LORAZEPAM [Concomitant]

REACTIONS (3)
  - HYPOKALAEMIA [None]
  - HYPOMAGNESAEMIA [None]
  - PNEUMONIA [None]
